FAERS Safety Report 10096612 (Version 1)
Quarter: 2014Q2

REPORT INFORMATION
  Report Type: Spontaneous
  Country: US (occurrence: None)
  Receive Date: 20140421
  Receipt Date: 20140421
  Transmission Date: 20141212
  Serious: No
  Sender: FDA-Public Use
  Company Number: None

PATIENT
  Age: 22 Year
  Sex: Male
  Weight: 75.75 kg

DRUGS (11)
  1. CLONIDINE 0.1 MG [Suspect]
     Dosage: 0.1 MG (1 TAB), TID, ORAL
     Route: 048
     Dates: start: 20140414, end: 20140416
  2. SUBOXONE 4-1 MG [Concomitant]
  3. ROBAXIN 750MG [Concomitant]
  4. LIBRIUM 25MG [Concomitant]
  5. CLONIDINE TTS [Concomitant]
  6. FOLIC ACID 1MG [Concomitant]
  7. VISTARIL 50MG [Concomitant]
  8. IBUPROFEN 600MG [Concomitant]
  9. MULTIVITAMIN WITH MINERALS [Concomitant]
  10. PSEUDOEPHEDRINE 30MG [Concomitant]
  11. THIAMINE 100MG [Concomitant]

REACTIONS (2)
  - Blood pressure decreased [None]
  - Heart rate decreased [None]
